FAERS Safety Report 15266787 (Version 1)
Quarter: 2018Q3

REPORT INFORMATION
  Report Type: Spontaneous
  Country: ZA (occurrence: ZA)
  Receive Date: 20180810
  Receipt Date: 20180810
  Transmission Date: 20181010
  Serious: Yes (Hospitalization, Other)
  Sender: FDA-Public Use
  Company Number: ZA-PFIZER INC-2018310209

PATIENT
  Age: 77 Year
  Sex: Female

DRUGS (8)
  1. MONICOR SR [Suspect]
     Active Substance: ISOSORBIDE MONONITRATE
     Dosage: 60 MG, UNK
  2. ECOTRIN [Suspect]
     Active Substance: ASPIRIN
     Dosage: 81 MG, UNK
  3. MYLAN PANTOPRAZOLE [Suspect]
     Active Substance: PANTOPRAZOLE SODIUM
     Dosage: 20 MG, UNK
  4. BRAZEPAM [Suspect]
     Active Substance: BROMAZEPAM
     Dosage: 6 MG, UNK
  5. ELTROXIN [Suspect]
     Active Substance: LEVOTHYROXINE
     Dosage: 50 UG, UNK
  6. PREMARIN [Suspect]
     Active Substance: ESTROGENS, CONJUGATED
     Dosage: 0.3 MG, UNK
  7. TREPILINE [Suspect]
     Active Substance: AMITRIPTYLINE
     Dosage: 5 MG, UNK
  8. MIRADEP [Suspect]
     Active Substance: MIRTAZAPINE
     Dosage: 30 MG, UNK

REACTIONS (1)
  - Diarrhoea [Not Recovered/Not Resolved]
